FAERS Safety Report 11147970 (Version 1)
Quarter: 2015Q2

REPORT INFORMATION
  Report Type: Spontaneous
  Country: DE (occurrence: DE)
  Receive Date: 20150529
  Receipt Date: 20150529
  Transmission Date: 20150821
  Serious: Yes (Other)
  Sender: FDA-Public Use
  Company Number: DE-ASTRAZENECA-2015SE45056

PATIENT
  Sex: Female

DRUGS (1)
  1. ASCOTOP [Suspect]
     Active Substance: ZOLMITRIPTAN
     Indication: MIGRAINE
     Dosage: USED SEVEN TO 10 TIMES EVERY MONTH, 5 MG
     Route: 045

REACTIONS (1)
  - Eustachian tube dysfunction [Not Recovered/Not Resolved]
